FAERS Safety Report 18707268 (Version 1)
Quarter: 2021Q1

REPORT INFORMATION
  Report Type: Spontaneous
  Country: US (occurrence: US)
  Receive Date: 20210106
  Receipt Date: 20210106
  Transmission Date: 20210419
  Serious: Yes (Other)
  Sender: FDA-Public Use
  Company Number: US-FRESENIUS KABI-FK202100173

PATIENT
  Age: 42 Year
  Sex: Female

DRUGS (3)
  1. MESNA (MANUFACTURER UNKNOWN) [Suspect]
     Active Substance: MESNA
     Indication: METAPLASTIC BREAST CARCINOMA
     Route: 065
     Dates: start: 201803, end: 201805
  2. DOXORUBICIN (MANUFACTURER UNKNOWN) [Suspect]
     Active Substance: DOXORUBICIN
     Indication: METAPLASTIC BREAST CARCINOMA
     Route: 065
     Dates: start: 201803, end: 201805
  3. IFOSFAMIDE (MANUFACTURER UNKNOWN) [Suspect]
     Active Substance: IFOSFAMIDE
     Indication: METAPLASTIC BREAST CARCINOMA
     Route: 065
     Dates: start: 201803, end: 201805

REACTIONS (1)
  - Febrile neutropenia [Unknown]
